FAERS Safety Report 6936595-3 (Version None)
Quarter: 2010Q3

REPORT INFORMATION
  Report Type: 
  Country: None (occurrence: None)
  Receive Date: 20100823
  Receipt Date: 20100816
  Transmission Date: 20110219
  Serious: Yes (Hospitalization)
  Sender: FDA-Public Use
  Company Number: US-JNJFOC-20100805454

PATIENT
  Age: 61 Year
  Sex: Male
  Weight: 72.58 kg

DRUGS (5)
  1. EXTRA STRENGTH TYLENOL [Suspect]
     Route: 048
  2. EXTRA STRENGTH TYLENOL [Suspect]
     Indication: HEADACHE
     Dosage: TOOK TWO TABS, ONCE
     Route: 048
  3. MORPHINE [Concomitant]
     Indication: FIBROMYALGIA
  4. PRILOSEC [Concomitant]
     Indication: DYSPEPSIA
  5. OTHER THERAPEUTIC PRODUCTS [Concomitant]
     Indication: PRODUCT USED FOR UNKNOWN INDICATION

REACTIONS (3)
  - COLD SWEAT [None]
  - REGURGITATION [None]
  - VOMITING [None]
